FAERS Safety Report 9640610 (Version 2)
Quarter: 2014Q4

REPORT INFORMATION
  Report Type: Report from Study
  Country: US (occurrence: US)
  Receive Date: 20131023
  Receipt Date: 20141027
  Transmission Date: 20150529
  Serious: No
  Sender: FDA-Public Use
  Company Number: US-ABBVIE-13P-163-1134368-00

PATIENT
  Age: 39 Year
  Sex: Female

DRUGS (4)
  1. LUPRON DEPOT [Suspect]
     Active Substance: LEUPROLIDE ACETATE
     Indication: ENDOMETRIOSIS
     Dates: start: 20130701
  2. AMITRIPTYLINE [Concomitant]
     Active Substance: AMITRIPTYLINE
     Indication: PRODUCT USED FOR UNKNOWN INDICATION
     Dosage: AT BEDTIME
  3. MULTIVITAMIN [Concomitant]
     Active Substance: VITAMINS
     Indication: VITAMIN SUPPLEMENTATION
  4. TYLENOL [Concomitant]
     Active Substance: ACETAMINOPHEN
     Indication: PAIN

REACTIONS (13)
  - Pain [Not Recovered/Not Resolved]
  - Paraesthesia [Unknown]
  - Musculoskeletal stiffness [Not Recovered/Not Resolved]
  - Dysphonia [Not Recovered/Not Resolved]
  - Headache [Recovered/Resolved]
  - Paraesthesia [Recovered/Resolved]
  - Headache [Not Recovered/Not Resolved]
  - Dizziness [Not Recovered/Not Resolved]
  - Muscle twitching [Unknown]
  - Memory impairment [Not Recovered/Not Resolved]
  - Musculoskeletal pain [Not Recovered/Not Resolved]
  - Fatigue [Not Recovered/Not Resolved]
  - Neck pain [Not Recovered/Not Resolved]

NARRATIVE: CASE EVENT DATE: 201307
